FAERS Safety Report 5623144-5 (Version None)
Quarter: 2008Q1

REPORT INFORMATION
  Report Type: 
  Country: None (occurrence: None)
  Receive Date: 20080212
  Receipt Date: 20080204
  Transmission Date: 20080703
  Serious: Yes (Hospitalization, Other)
  Sender: FDA-Public Use
  Company Number: DE-GENENTECH-255403

PATIENT
  Sex: Female

DRUGS (3)
  1. LUCENTIS [Suspect]
     Indication: MACULAR DEGENERATION
     Dosage: 0.5 MG, SINGLE
     Route: 031
     Dates: start: 20070521, end: 20070521
  2. LUCENTIS [Suspect]
     Dosage: 0.5 MG, SINGLE
     Route: 031
     Dates: start: 20070710, end: 20070710
  3. LUCENTIS [Suspect]
     Dosage: 0.5 MG, SINGLE
     Route: 031
     Dates: start: 20070827, end: 20070827

REACTIONS (1)
  - CEREBRAL ISCHAEMIA [None]
